FAERS Safety Report 5012960-9 (Version None)
Quarter: 2006Q2

REPORT INFORMATION
  Report Type: 
  Country: None (occurrence: None)
  Receive Date: 20060525
  Receipt Date: 20060503
  Transmission Date: 20061013
  Serious: No
  Sender: FDA-Public Use
  Company Number: US200605001446

PATIENT
  Age: 18 Year
  Sex: Female

DRUGS (1)
  1. STRATTERA [Suspect]
     Dosage: 60 MG
     Dates: start: 20060301

REACTIONS (1)
  - HEPATIC ENZYME INCREASED [None]
